FAERS Safety Report 12867714 (Version 1)
Quarter: 2016Q4

REPORT INFORMATION
  Report Type: Spontaneous
  Country: FR (occurrence: FR)
  Receive Date: 20161020
  Receipt Date: 20161020
  Transmission Date: 20170207
  Serious: Yes (Hospitalization)
  Sender: FDA-Public Use
  Company Number: FR-ELI_LILLY_AND_COMPANY-FR201610004478

PATIENT
  Age: 79 Year
  Sex: Female

DRUGS (13)
  1. CORTANCYL [Suspect]
     Active Substance: PREDNISONE
     Indication: SKIN LESION
     Dosage: 2.5 MG, QD
     Route: 048
     Dates: start: 201511
  2. PANTOPRAZOLE [Concomitant]
     Active Substance: PANTOPRAZOLE SODIUM
  3. LAROXYL [Concomitant]
     Active Substance: AMITRIPTYLINE
  4. UVEDOSE [Concomitant]
     Active Substance: CHOLECALCIFEROL
  5. HUMALOG [Suspect]
     Active Substance: INSULIN LISPRO
     Indication: TYPE 2 DIABETES MELLITUS
     Dosage: 44-48 IU, QD
     Route: 058
     Dates: start: 1988
  6. LASILIX                            /00032601/ [Concomitant]
     Active Substance: FUROSEMIDE
  7. METFORMINE [Concomitant]
     Active Substance: METFORMIN HYDROCHLORIDE
  8. APROVEL [Concomitant]
     Active Substance: IRBESARTAN
     Dosage: 75 UNK, UNK
  9. LEVEMIR [Suspect]
     Active Substance: INSULIN DETEMIR
     Indication: TYPE 2 DIABETES MELLITUS
     Dosage: 44 IU, QD
     Route: 058
     Dates: start: 1988
  10. ADENURIC [Concomitant]
     Active Substance: FEBUXOSTAT
  11. DAFALGAN [Concomitant]
     Active Substance: ACETAMINOPHEN
  12. PREVISCAN                          /00261401/ [Concomitant]
     Active Substance: PENTOXIFYLLINE
  13. DIFFU K [Concomitant]
     Active Substance: POTASSIUM CHLORIDE

REACTIONS (2)
  - Vasculitis necrotising [Unknown]
  - Injection site injury [Unknown]

NARRATIVE: CASE EVENT DATE: 201602
